FAERS Safety Report 10539720 (Version 1)
Quarter: 2014Q4

REPORT INFORMATION
  Report Type: Spontaneous
  Country: IT (occurrence: IT)
  Receive Date: 20141024
  Receipt Date: 20141024
  Transmission Date: 20150529
  Serious: Yes (Hospitalization)
  Sender: FDA-Public Use
  Company Number: PHHY2014IT136000

PATIENT
  Age: 68 Year
  Sex: Female

DRUGS (5)
  1. CALCIUM + VITAMIN D3 [Concomitant]
     Indication: RHEUMATOID ARTHRITIS
     Route: 048
  2. LEFLUNOMIDE. [Concomitant]
     Active Substance: LEFLUNOMIDE
     Indication: RHEUMATOID ARTHRITIS
     Route: 065
  3. IBANDRONATE SODIUM. [Suspect]
     Active Substance: IBANDRONATE SODIUM
     Indication: OSTEOPOROSIS
     Dosage: 1 DF, QMO
     Route: 065
  4. METHOTREXATE [Concomitant]
     Active Substance: METHOTREXATE
     Indication: RHEUMATOID ARTHRITIS
     Route: 065
  5. PREDNISONE. [Suspect]
     Active Substance: PREDNISONE
     Indication: RHEUMATOID ARTHRITIS
     Route: 065

REACTIONS (11)
  - Malaise [Unknown]
  - Headache [Unknown]
  - Trismus [Unknown]
  - Oral mucosal erythema [Unknown]
  - Swelling [Unknown]
  - Osteonecrosis of jaw [Unknown]
  - Oral infection [Recovered/Resolved]
  - Oral pain [Unknown]
  - Pyrexia [Unknown]
  - Abscess jaw [Recovered/Resolved]
  - Actinomycosis [Recovered/Resolved]

NARRATIVE: CASE EVENT DATE: 201303
